FAERS Safety Report 7942711-7 (Version None)
Quarter: 2011Q4

REPORT INFORMATION
  Report Type: 
  Country: None (occurrence: None)
  Receive Date: 20111128
  Receipt Date: 20111121
  Transmission Date: 20120403
  Serious: Yes (Life-Threatening, Hospitalization, Other)
  Sender: FDA-Public Use
  Company Number: AU-ASTRAZENECA-2011SE70994

PATIENT
  Age: 0 Week
  Sex: Male
  Weight: 4 kg

DRUGS (6)
  1. XANAX [Concomitant]
     Indication: ANXIETY DISORDER
     Route: 064
  2. ARIPIPRAZOLE [Suspect]
     Indication: PSYCHOTIC DISORDER
     Dosage: 10-30 MG DAILY
     Route: 064
     Dates: end: 20100806
  3. PRILOSEC [Suspect]
     Indication: ANTACID THERAPY
     Route: 064
     Dates: end: 20100806
  4. ADDERALL 10 [Concomitant]
     Indication: ATTENTION DEFICIT/HYPERACTIVITY DISORDER
     Route: 064
  5. PREGNANCY MULTIVITAMINS [Concomitant]
     Indication: VITAMIN SUPPLEMENTATION
     Route: 064
  6. SEROQUEL XR [Suspect]
     Indication: PSYCHOTIC DISORDER
     Dosage: 12.5-300 MG DAILY
     Route: 064
     Dates: end: 20100806

REACTIONS (1)
  - RESPIRATORY DISTRESS [None]
